FAERS Safety Report 24017840 (Version 1)
Quarter: 2024Q2

REPORT INFORMATION
  Report Type: Report from Study
  Country: US (occurrence: US)
  Receive Date: 20240627
  Receipt Date: 20240627
  Transmission Date: 20240716
  Serious: Yes (Other)
  Sender: FDA-Public Use
  Company Number: US-JNJFOC-20230960256

PATIENT
  Age: 79 Year
  Sex: Male

DRUGS (3)
  1. ERLEADA [Suspect]
     Active Substance: APALUTAMIDE
     Indication: Prostate cancer
     Route: 048
     Dates: start: 20230410
  2. ELIGARD [Suspect]
     Active Substance: LEUPROLIDE ACETATE
  3. MIRALAX [Concomitant]
     Active Substance: POLYETHYLENE GLYCOL 3350
     Indication: Constipation

REACTIONS (13)
  - Rash pruritic [Not Recovered/Not Resolved]
  - Rash vesicular [Not Recovered/Not Resolved]
  - Eye inflammation [Recovered/Resolved]
  - Product packaging quantity issue [Unknown]
  - Visual impairment [Not Recovered/Not Resolved]
  - Micturition urgency [Not Recovered/Not Resolved]
  - Muscular weakness [Not Recovered/Not Resolved]
  - Skin disorder [Not Recovered/Not Resolved]
  - Rectal lesion [Not Recovered/Not Resolved]
  - Abdominal distension [Not Recovered/Not Resolved]
  - Hot flush [Not Recovered/Not Resolved]
  - Prostatic specific antigen [Unknown]
  - Skin exfoliation [Unknown]

NARRATIVE: CASE EVENT DATE: 20230410
